FAERS Safety Report 23089894 (Version 1)
Quarter: 2023Q4

REPORT INFORMATION
  Report Type: Report from Study
  Country: DE (occurrence: DE)
  Receive Date: 20231020
  Receipt Date: 20231020
  Transmission Date: 20240110
  Serious: Yes (Other)
  Sender: FDA-Public Use
  Company Number: DE-002147023-NVSC2023DE223146

PATIENT
  Age: 57 Year
  Sex: Female

DRUGS (5)
  1. MEKINIST [Suspect]
     Active Substance: TRAMETINIB DIMETHYL SULFOXIDE
     Indication: Malignant melanoma
     Dosage: UNK
     Route: 065
     Dates: start: 201512, end: 201706
  2. MEKINIST [Suspect]
     Active Substance: TRAMETINIB DIMETHYL SULFOXIDE
     Dosage: UNK
     Route: 065
     Dates: start: 202106, end: 202112
  3. TAFINLAR [Suspect]
     Active Substance: DABRAFENIB MESYLATE
     Indication: Malignant melanoma
     Dosage: UNK
     Route: 065
     Dates: start: 201512, end: 201706
  4. TAFINLAR [Suspect]
     Active Substance: DABRAFENIB MESYLATE
     Dosage: UNK
     Route: 065
     Dates: start: 202106, end: 202112
  5. OPDIVO [Concomitant]
     Active Substance: NIVOLUMAB
     Indication: Product used for unknown indication
     Dosage: UNK
     Route: 065

REACTIONS (16)
  - Polyneuropathy [Unknown]
  - Diabetes mellitus [Unknown]
  - Scar pain [Unknown]
  - Swelling [Unknown]
  - Fatigue [Unknown]
  - Arthralgia [Unknown]
  - Decreased appetite [Unknown]
  - Hormone level abnormal [Unknown]
  - Colitis [Unknown]
  - Fibromyalgia [Unknown]
  - Lymphoedema [Unknown]
  - Depressed mood [Unknown]
  - Weight decreased [Unknown]
  - Diarrhoea [Unknown]
  - Pyrexia [Unknown]
  - Bladder dysfunction [Unknown]
